FAERS Safety Report 5430099-5 (Version None)
Quarter: 2007Q3

REPORT INFORMATION
  Report Type: 
  Country: None (occurrence: None)
  Receive Date: 20070829
  Receipt Date: 20070820
  Transmission Date: 20080115
  Serious: Yes (Hospitalization)
  Sender: FDA-Public Use
  Company Number: JP-MERCK-0707USA03655

PATIENT
  Age: 68 Year
  Sex: Male

DRUGS (5)
  1. HYZAAR [Suspect]
     Indication: HYPERTENSION
     Route: 048
     Dates: start: 20070226, end: 20070718
  2. ATELEC [Suspect]
     Indication: HYPERTENSION
     Route: 048
     Dates: start: 20070226, end: 20070718
  3. BEZAFIBRATE [Suspect]
     Indication: HYPERLIPIDAEMIA
     Route: 048
     Dates: start: 20070707, end: 20070718
  4. ALLOPURINOL [Suspect]
     Indication: HYPERURICAEMIA
     Route: 048
     Dates: start: 20070707, end: 20070718
  5. BISOPROLOL [Suspect]
     Indication: HYPERTENSION
     Route: 048
     Dates: start: 20070216, end: 20070718

REACTIONS (1)
  - CEREBRAL INFARCTION [None]
